FAERS Safety Report 19591053 (Version 3)
Quarter: 2021Q3

REPORT INFORMATION
  Report Type: Spontaneous
  Country: BR (occurrence: BR)
  Receive Date: 20210721
  Receipt Date: 20210901
  Transmission Date: 20211014
  Serious: No
  Sender: FDA-Public Use
  Company Number: BR-PFIZER INC-2021756159

PATIENT
  Sex: Female

DRUGS (1)
  1. DEPO?PROVERA [Suspect]
     Active Substance: MEDROXYPROGESTERONE ACETATE
     Dosage: UNK

REACTIONS (2)
  - Incorrect dose administered by device [Unknown]
  - Syringe issue [Unknown]
